FAERS Safety Report 8289675-7 (Version None)
Quarter: 2012Q2

REPORT INFORMATION
  Report Type: 
  Country: None (occurrence: None)
  Receive Date: 20120417
  Receipt Date: 20120411
  Transmission Date: 20120825
  Serious: Yes (Other)
  Sender: FDA-Public Use
  Company Number: US-BAYER-2012-035338

PATIENT
  Age: 62 Year
  Sex: Male

DRUGS (6)
  1. VITAMIN TAB [Concomitant]
  2. STAXYN [Suspect]
     Indication: ERECTILE DYSFUNCTION
     Dosage: 10 MG, ONCE
     Route: 048
     Dates: start: 20120407, end: 20120407
  3. OTHER CHOLESTEROL AND TRIGLYCERIDE REDUCERS [Concomitant]
  4. CLONAZEPAM [Concomitant]
  5. PREVACID [Concomitant]
  6. VITAMIN B NOS [Concomitant]

REACTIONS (2)
  - ERECTILE DYSFUNCTION [None]
  - DEAFNESS UNILATERAL [None]
